FAERS Safety Report 26083739 (Version 2)
Quarter: 2025Q4

REPORT INFORMATION
  Report Type: Spontaneous
  Country: US (occurrence: US)
  Receive Date: 20251124
  Receipt Date: 20251204
  Transmission Date: 20260119
  Serious: No
  Sender: GILEAD
  Company Number: US-GILEAD-2025-0737505

PATIENT
  Age: 57 Year
  Sex: Male

DRUGS (3)
  1. YEZTUGO [Suspect]
     Active Substance: LENACAPAVIR SODIUM
     Indication: Product used for unknown indication
     Dosage: (TABLET FORMULATION)
     Route: 065
  2. YEZTUGO [Suspect]
     Active Substance: LENACAPAVIR SODIUM
     Indication: Product used for unknown indication
     Dosage: (INJECTION FORMULATION)
     Route: 058
     Dates: start: 20251106, end: 20251106
  3. YEZTUGO [Suspect]
     Active Substance: LENACAPAVIR SODIUM
     Dosage: (INJECTION FORMULATION)
     Route: 058
     Dates: start: 20251106, end: 20251106

REACTIONS (10)
  - Injection site discomfort [Recovered/Resolved]
  - Injection site reaction [Recovered/Resolved]
  - Injection site erythema [Recovered/Resolved]
  - Injection site swelling [Recovered/Resolved]
  - Injection site induration [Recovered/Resolved]
  - Injection site nodule [Recovering/Resolving]
  - Body temperature increased [Unknown]
  - Perineal rash [Recovered/Resolved]
  - Rash papular [Recovered/Resolved]
  - Wrong technique in product usage process [Unknown]

NARRATIVE: CASE EVENT DATE: 20251107
